FAERS Safety Report 18901024 (Version 1)
Quarter: 2021Q1

REPORT INFORMATION
  Report Type: Spontaneous
  Country: US (occurrence: US)
  Receive Date: 20210217
  Receipt Date: 20210217
  Transmission Date: 20210420
  Serious: Yes (Disabling)
  Sender: FDA-Public Use
  Company Number: US-SA-2021SA049761

PATIENT
  Age: 60 Year
  Sex: Female

DRUGS (1)
  1. ROLAIDS EXTRA STRENGTH MINT [Suspect]
     Active Substance: CALCIUM CARBONATE\MAGNESIUM HYDROXIDE
     Indication: DYSPEPSIA
     Dosage: 2 DF, 3 OR MORE A DAY IF NEEDED
     Route: 065
     Dates: start: 20170818, end: 20180127

REACTIONS (4)
  - Nerve injury [Unknown]
  - Tooth fracture [Unknown]
  - Dental restoration failure [Unknown]
  - Neuralgia [Unknown]

NARRATIVE: CASE EVENT DATE: 2018
